FAERS Safety Report 6126980-4 (Version None)
Quarter: 2009Q1

REPORT INFORMATION
  Report Type: 
  Country: None (occurrence: None)
  Receive Date: 20090320
  Receipt Date: 20090311
  Transmission Date: 20090719
  Serious: Yes (Hospitalization, Disabling)
  Sender: FDA-Public Use
  Company Number: US-MERCK-0805USA00909

PATIENT
  Age: 49 Year
  Sex: Female
  Weight: 59 kg

DRUGS (2)
  1. FOSAMAX [Suspect]
     Indication: OSTEOPOROSIS
     Route: 048
     Dates: start: 20020101, end: 20060414
  2. FOSAMAX [Suspect]
     Route: 048
     Dates: start: 20060817, end: 20070101

REACTIONS (33)
  - ABDOMINAL HERNIA [None]
  - ABDOMINAL PAIN [None]
  - ABSCESS JAW [None]
  - ASTHMA [None]
  - BACK PAIN [None]
  - BONE DISORDER [None]
  - BRONCHITIS [None]
  - CHRONIC OBSTRUCTIVE PULMONARY DISEASE [None]
  - DENTAL CARIES [None]
  - DEPRESSION [None]
  - DRUG HYPERSENSITIVITY [None]
  - EATING DISORDER [None]
  - EMPHYSEMA [None]
  - FACE INJURY [None]
  - FISTULA DISCHARGE [None]
  - GASTRITIS [None]
  - GASTROENTERITIS [None]
  - GINGIVAL DISORDER [None]
  - HYPERTENSION [None]
  - HYPOAESTHESIA [None]
  - INSOMNIA [None]
  - LOW DENSITY LIPOPROTEIN INCREASED [None]
  - OCCULT BLOOD POSITIVE [None]
  - ORAL DISCHARGE [None]
  - ORAL INFECTION [None]
  - OSTEOMYELITIS [None]
  - OSTEONECROSIS [None]
  - PNEUMONIA [None]
  - POST PROCEDURAL HAEMORRHAGE [None]
  - RHEUMATOID ARTHRITIS [None]
  - SKIN ULCER [None]
  - TEMPOROMANDIBULAR JOINT SYNDROME [None]
  - URINARY TRACT INFECTION [None]
